FAERS Safety Report 6443730-2 (Version None)
Quarter: 2009Q4

REPORT INFORMATION
  Report Type: 
  Country: None (occurrence: None)
  Receive Date: 20091117
  Receipt Date: 20091113
  Transmission Date: 20100525
  Serious: Yes (Other)
  Sender: FDA-Public Use
  Company Number: AU-MYLANLABS-2009S1019216

PATIENT
  Age: 24 Year
  Sex: Female

DRUGS (4)
  1. LOXALATE [Suspect]
     Indication: POSTPARTUM DEPRESSION
     Route: 048
     Dates: start: 20091103
  2. ISOPTIN [Concomitant]
     Indication: BLOOD PRESSURE
  3. TOPAMAX [Concomitant]
     Indication: MIGRAINE
  4. STEMZINE [Concomitant]
     Indication: VERTIGO
     Dates: start: 20080101

REACTIONS (6)
  - ANXIETY [None]
  - BIPOLAR DISORDER [None]
  - DIZZINESS [None]
  - NAUSEA [None]
  - SOMNOLENCE [None]
  - VOMITING [None]
